FAERS Safety Report 24381270 (Version 2)
Quarter: 2024Q4

REPORT INFORMATION
  Report Type: Spontaneous
  Country: ES (occurrence: ES)
  Receive Date: 20241001
  Receipt Date: 20241004
  Transmission Date: 20250114
  Serious: Yes (Hospitalization, Other)
  Sender: RANBAXY
  Company Number: ES-SUN PHARMACEUTICAL INDUSTRIES LTD-2024R1-470713

PATIENT
  Age: 29 Year
  Sex: Male

DRUGS (12)
  1. BACLOFEN [Suspect]
     Active Substance: BACLOFEN
     Indication: Chronic fatigue syndrome
     Dosage: 10 MILLIGRAM, BID
     Route: 065
     Dates: start: 202305
  2. BACLOFEN [Suspect]
     Active Substance: BACLOFEN
     Dosage: 20 MILLIGRAM, BID
     Route: 065
  3. BACLOFEN [Suspect]
     Active Substance: BACLOFEN
     Dosage: 30 MILLIGRAM, BID
     Route: 065
  4. CARVEDILOL [Suspect]
     Active Substance: CARVEDILOL
     Indication: Chronic fatigue syndrome
     Dosage: 1.25 MILLIGRAM, BID
     Route: 065
     Dates: start: 202302
  5. CARVEDILOL [Suspect]
     Active Substance: CARVEDILOL
     Dosage: 2.5 MILLIGRAM, BID
     Route: 065
  6. METHYLDOPA [Suspect]
     Active Substance: METHYLDOPA
     Indication: Chronic fatigue syndrome
     Dosage: UNK
     Route: 065
     Dates: start: 202301
  7. MOXONIDINE [Suspect]
     Active Substance: MOXONIDINE
     Indication: Chronic fatigue syndrome
     Dosage: 0.2 MILLIGRAM, BID
     Route: 065
     Dates: start: 202212
  8. MOXONIDINE [Suspect]
     Active Substance: MOXONIDINE
     Dosage: 0.3 MILLIGRAM
     Route: 065
  9. MOXONIDINE [Suspect]
     Active Substance: MOXONIDINE
     Dosage: 0.4 MILLIGRAM, BID
     Route: 065
  10. PROPRANOLOL [Suspect]
     Active Substance: PROPRANOLOL HYDROCHLORIDE
     Indication: Chronic fatigue syndrome
     Dosage: 20 MILLIGRAM, BID
     Route: 065
     Dates: start: 202210
  11. PROPRANOLOL [Suspect]
     Active Substance: PROPRANOLOL HYDROCHLORIDE
     Dosage: 40 MILLIGRAM, BID
     Route: 065
  12. PROPRANOLOL [Suspect]
     Active Substance: PROPRANOLOL HYDROCHLORIDE
     Dosage: 60 MILLIGRAM, BID
     Route: 065

REACTIONS (1)
  - Treatment failure [Unknown]
